FAERS Safety Report 4418119-8 (Version None)
Quarter: 2004Q3

REPORT INFORMATION
  Report Type: 
  Country: None (occurrence: None)
  Receive Date: 20040809
  Receipt Date: 20040714
  Transmission Date: 20050211
  Serious: Yes (Hospitalization)
  Sender: FDA-Public Use
  Company Number: 200412240EU

PATIENT
  Age: 66 Year
  Sex: Male

DRUGS (15)
  1. DOCETAXEL [Suspect]
     Indication: NON-SMALL CELL LUNG CANCER
     Route: 042
     Dates: start: 20040217, end: 20040301
  2. CARBOPLATIN [Suspect]
     Indication: NON-SMALL CELL LUNG CANCER
     Dosage: DOSE: 6 AUC
     Route: 042
     Dates: start: 20040217, end: 20040301
  3. CODE UNBROKEN [Suspect]
     Indication: NON-SMALL CELL LUNG CANCER
     Route: 048
     Dates: start: 20040217, end: 20040301
  4. MOTILIUM [Concomitant]
  5. AUGMENTIN '400' [Concomitant]
  6. DURAGESIC [Concomitant]
  7. PENTAZOL [Concomitant]
  8. PARACETAMOL [Concomitant]
  9. PREDNISONE [Concomitant]
  10. CODEIN [Concomitant]
  11. PRIMPERAN INJ [Concomitant]
  12. SEVREDOL [Concomitant]
  13. NORMISON [Concomitant]
  14. SERESTA [Concomitant]
  15. METAMUCIL-2 [Concomitant]

REACTIONS (2)
  - CANCER PAIN [None]
  - DYSPHAGIA [None]
